FAERS Safety Report 15947748 (Version 2)
Quarter: 2019Q2

REPORT INFORMATION
  Report Type: Spontaneous
  Country: US (occurrence: US)
  Receive Date: 20190211
  Receipt Date: 20190416
  Transmission Date: 20190711
  Serious: Yes (Hospitalization)
  Sender: FDA-Public Use
  Company Number: US-ROCHE-ITM201504IM014313

PATIENT
  Age: 64 Year
  Sex: Female

DRUGS (16)
  1. ESBRIET [Suspect]
     Active Substance: PIRFENIDONE
     Indication: IDIOPATHIC PULMONARY FIBROSIS
     Route: 048
     Dates: start: 20150207, end: 201504
  2. ESBRIET [Suspect]
     Active Substance: PIRFENIDONE
     Dosage: 2-267 MG TAB IN THE AM; 3-267 IN AFTERNOON AND PM
     Route: 048
  3. NEXIUM [Concomitant]
     Active Substance: ESOMEPRAZOLE MAGNESIUM
  4. CELEBREX [Concomitant]
     Active Substance: CELECOXIB
  5. HCTZ [Concomitant]
     Active Substance: HYDROCHLOROTHIAZIDE
  6. MONTELUKAST [Concomitant]
     Active Substance: MONTELUKAST SODIUM
  7. DEXILANT [Concomitant]
     Active Substance: DEXLANSOPRAZOLE
  8. ESBRIET [Suspect]
     Active Substance: PIRFENIDONE
     Dosage: 2 TABS IN MORNING, 3 TABS LUNCH, 3 TABS DINNER
     Route: 048
  9. ADVAIR HFA [Concomitant]
     Active Substance: FLUTICASONE PROPIONATE\SALMETEROL XINAFOATE
  10. ESBRIET [Suspect]
     Active Substance: PIRFENIDONE
     Indication: IDIOPATHIC PULMONARY FIBROSIS
     Route: 048
  11. ESBRIET [Suspect]
     Active Substance: PIRFENIDONE
     Dosage: MORNING DOSE INCREASED TO 3 TABLETS
     Route: 048
     Dates: start: 2018
  12. DUONEB [Concomitant]
     Active Substance: ALBUTEROL SULFATE\IPRATROPIUM BROMIDE
  13. ESBRIET [Suspect]
     Active Substance: PIRFENIDONE
     Route: 065
     Dates: start: 201805
  14. SIMVASTATIN. [Concomitant]
     Active Substance: SIMVASTATIN
  15. NASONEX [Concomitant]
     Active Substance: MOMETASONE FUROATE
  16. LASIX [Concomitant]
     Active Substance: FUROSEMIDE

REACTIONS (9)
  - Dyspnoea [Unknown]
  - Sunburn [Unknown]
  - Gastric disorder [Recovered/Resolved]
  - Rash [Not Recovered/Not Resolved]
  - Dyspepsia [Not Recovered/Not Resolved]
  - Diarrhoea [Unknown]
  - Fatigue [Unknown]
  - Dizziness [Unknown]
  - Head discomfort [Unknown]

NARRATIVE: CASE EVENT DATE: 20150401
